FAERS Safety Report 12289237 (Version 1)
Quarter: 2016Q2

REPORT INFORMATION
  Report Type: Spontaneous
  Country: GB (occurrence: GB)
  Receive Date: 20160421
  Receipt Date: 20160421
  Transmission Date: 20160815
  Serious: Yes (Hospitalization)
  Sender: FDA-Public Use
  Company Number: GB-BAYER-2016-069829

PATIENT
  Age: 73 Year
  Sex: Female
  Weight: 91.6 kg

DRUGS (12)
  1. EMULSIDERM [Concomitant]
     Dosage: UNK
  2. RIFAMPICIN [Suspect]
     Active Substance: RIFAMPIN
     Dosage: UNK
  3. VERAPAMIL HYDROCHLORIDE. [Concomitant]
     Active Substance: VERAPAMIL HYDROCHLORIDE
     Dosage: 120 MG, BID
  4. MEROPENEM. [Suspect]
     Active Substance: MEROPENEM
     Indication: INFECTION
     Dosage: 1 G, TID
     Route: 042
     Dates: start: 20160220, end: 20160226
  5. CO-DYDRAMOL [Concomitant]
     Active Substance: ACETAMINOPHEN\DIHYDROCODEINE
     Dosage: UNK
  6. CIPROFLOXACIN. [Suspect]
     Active Substance: CIPROFLOXACIN
     Dosage: UNK
  7. FUROSEMIDE. [Concomitant]
     Active Substance: FUROSEMIDE
     Dosage: 40 MG, QD
  8. LINEZOLID. [Suspect]
     Active Substance: LINEZOLID
     Dosage: UNK
  9. VANCOMYCIN [Suspect]
     Active Substance: VANCOMYCIN
     Dosage: UNK
     Dates: end: 20160226
  10. IRBESARTAN. [Concomitant]
     Active Substance: IRBESARTAN
     Dosage: 300 MG, QD
  11. LEVOTHYROXINE. [Concomitant]
     Active Substance: LEVOTHYROXINE
     Dosage: 125 ?G, QD
  12. ETANERCEPT [Concomitant]
     Active Substance: ETANERCEPT
     Dosage: 1 DF, OW

REACTIONS (5)
  - Exfoliative rash [Recovering/Resolving]
  - C-reactive protein increased [Unknown]
  - Acute kidney injury [Recovering/Resolving]
  - Drug eruption [Recovering/Resolving]
  - White blood cell count increased [Unknown]

NARRATIVE: CASE EVENT DATE: 20160226
